FAERS Safety Report 7067359-0 (Version None)
Quarter: 2010Q4

REPORT INFORMATION
  Report Type: 
  Country: None (occurrence: None)
  Receive Date: 20101028
  Receipt Date: 20101019
  Transmission Date: 20110411
  Serious: Yes (Other)
  Sender: FDA-Public Use
  Company Number: HR-PAR PHARMACEUTICAL, INC-2010SCPR002255

PATIENT
  Age: 74 Year
  Sex: Male

DRUGS (5)
  1. RISPERIDONE [Suspect]
     Indication: MAJOR DEPRESSION
     Dosage: 2 MG, UNKNOWN
  2. TRICYCLIC ANTIDEPRESSANTS [Concomitant]
     Indication: DEPRESSION
     Dosage: UNK
     Route: 065
  3. HYPNOTICS [Concomitant]
     Indication: DEPRESSION
     Dosage: UNK
     Route: 065
  4. AMITRIPTYLINE HCL [Concomitant]
     Indication: DEPRESSION
     Dosage: 75 MG
     Route: 065
  5. ZOLPIDEM [Concomitant]
     Indication: DEPRESSION
     Dosage: 5 MG, PER DAY
     Route: 065

REACTIONS (4)
  - CONDITION AGGRAVATED [None]
  - DEPRESSION [None]
  - MENTAL IMPAIRMENT [None]
  - THERAPEUTIC RESPONSE UNEXPECTED WITH DRUG SUBSTITUTION [None]
